FAERS Safety Report 8467514-9 (Version None)
Quarter: 2012Q2

REPORT INFORMATION
  Report Type: 
  Country: None (occurrence: None)
  Receive Date: 20120626
  Receipt Date: 20120625
  Transmission Date: 20120825
  Serious: Yes (Hospitalization)
  Sender: FDA-Public Use
  Company Number: US-ROCHE-1079367

PATIENT
  Sex: Male
  Weight: 80.812 kg

DRUGS (2)
  1. TAXOL [Concomitant]
     Route: 042
     Dates: start: 20111129, end: 20120207
  2. AVASTIN [Suspect]
     Indication: NON-SMALL CELL LUNG CANCER
     Route: 042
     Dates: start: 20111129, end: 20120207

REACTIONS (1)
  - INTESTINAL PERFORATION [None]
